FAERS Safety Report 9512186 (Version 2)
Quarter: 2013Q3

REPORT INFORMATION
  Report Type: Spontaneous
  Country: DK (occurrence: None)
  Receive Date: 20130906
  Receipt Date: 20130919
  Transmission Date: 20140515
  Serious: Yes (Death, Life-Threatening, Hospitalization, Other)
  Sender: FDA-Public Use
  Company Number: 2013DEPDK00017

PATIENT
  Sex: 0

DRUGS (7)
  1. DEPOCYT(E) (CYTARABINE) LIPOSOME INJECTABLE SUSPENSION [Suspect]
  2. CYCLOPHOSPHAMIDE (CYCLOPHOSPHAMIDE) [Suspect]
  3. DOXORUBICIN [Suspect]
  4. METHOTREXATE [Suspect]
  5. DEXAMETHASONE [Suspect]
  6. ETOPOSIDE (ETOPOSIDE PHOSPHATE) [Suspect]
  7. PREDNISOLONE (PREDNISOLONE) [Suspect]

REACTIONS (10)
  - Escherichia bacteraemia [None]
  - C-reactive protein increased [None]
  - Disease recurrence [None]
  - Dehydration [None]
  - Febrile neutropenia [None]
  - Sepsis [None]
  - Vomiting [None]
  - Diarrhoea [None]
  - Pneumonia [None]
  - Stomatitis [None]
